FAERS Safety Report 21751424 (Version 3)
Quarter: 2022Q4

REPORT INFORMATION
  Report Type: Spontaneous
  Country: GB (occurrence: GB)
  Receive Date: 20221220
  Receipt Date: 20221227
  Transmission Date: 20230112
  Serious: Yes (Death, Other)
  Sender: FDA-Public Use
  Company Number: GB-009507513-2212GBR006368

PATIENT
  Age: 76 Year
  Sex: Male

DRUGS (1)
  1. PEMBROLIZUMAB [Suspect]
     Active Substance: PEMBROLIZUMAB
     Indication: Chronic lymphocytic leukaemia
     Dosage: 400 MILLIGRAM
     Dates: start: 20221124

REACTIONS (3)
  - Neutropenia [Unknown]
  - Autoimmune haemolytic anaemia [Unknown]
  - Cardiac arrest [Fatal]
